FAERS Safety Report 10200129 (Version 2)
Quarter: 2015Q2

REPORT INFORMATION
  Report Type: Spontaneous
  Country: US (occurrence: US)
  Receive Date: 20140527
  Receipt Date: 20150629
  Transmission Date: 20150821
  Serious: Yes (Hospitalization, Disabling, Other)
  Sender: FDA-Public Use
  Company Number: US-009507513-1405USA013673

PATIENT
  Sex: Female
  Weight: 59.41 kg

DRUGS (7)
  1. FOSAMAX [Suspect]
     Active Substance: ALENDRONATE SODIUM
     Indication: OSTEOPOROSIS
     Dosage: 10 MG, UNK
     Route: 048
     Dates: start: 1996
  2. FOSAMAX [Suspect]
     Active Substance: ALENDRONATE SODIUM
     Dosage: 70 MG, QW
     Route: 048
     Dates: end: 200907
  3. ALLEGRA [Concomitant]
     Active Substance: FEXOFENADINE HYDROCHLORIDE
     Indication: SEASONAL ALLERGY
     Dosage: UNK
     Dates: start: 2003
  4. ALENDRONATE SODIUM. [Suspect]
     Active Substance: ALENDRONATE SODIUM
     Indication: OSTEOPOROSIS
     Dosage: 70 MG, UNK
     Route: 048
     Dates: start: 20090720, end: 201006
  5. ESTROGEN NOS [Concomitant]
     Active Substance: ESTROGENS
     Indication: OESTROGEN DEFICIENCY
     Dosage: UNK
     Dates: start: 199406, end: 2003
  6. BONIVA [Suspect]
     Active Substance: IBANDRONATE SODIUM
     Indication: OSTEOPOROSIS
     Dosage: 150 MG, UNK
     Route: 048
     Dates: start: 201007, end: 2011
  7. CALCIUM (UNSPECIFIED) [Concomitant]
     Active Substance: CALCIUM
     Dosage: 1200 MG, QD
     Dates: start: 1984

REACTIONS (14)
  - Internal fixation of fracture [Unknown]
  - Hyperlipidaemia [Unknown]
  - Femur fracture [Unknown]
  - Limb injury [Unknown]
  - Spinal compression fracture [Unknown]
  - Bone graft [Unknown]
  - Vertebroplasty [Unknown]
  - Iliotibial band syndrome [Unknown]
  - Gastrooesophageal reflux disease [Unknown]
  - Fracture nonunion [Unknown]
  - Medical device removal [Unknown]
  - Intramedullary rod insertion [Unknown]
  - Hypertension [Unknown]
  - Blood potassium decreased [Unknown]

NARRATIVE: CASE EVENT DATE: 2003
